FAERS Safety Report 4672640-6 (Version None)
Quarter: 2005Q2

REPORT INFORMATION
  Report Type: 
  Country: None (occurrence: None)
  Receive Date: 20050524
  Receipt Date: 20050517
  Transmission Date: 20051028
  Serious: Yes (Death, Other)
  Sender: FDA-Public Use
  Company Number: PHEH2005US05625

PATIENT
  Sex: Male

DRUGS (3)
  1. BIAXIN [Suspect]
     Dosage: UNK, ONCE/SINGLE
     Dates: start: 20000530
  2. CLOZARIL [Suspect]
     Dosage: UNK, UNK
  3. CLOZARIL [Suspect]
     Dosage: 200MG AT 4AM, 250MG AT 3:30PM
     Route: 048
     Dates: start: 20000530

REACTIONS (10)
  - CARDIOMEGALY [None]
  - DRUG ABUSER [None]
  - DRUG INTERACTION [None]
  - HYPERTENSIVE HEART DISEASE [None]
  - LABORATORY TEST ABNORMAL [None]
  - MUSCLE RIGIDITY [None]
  - OBESITY [None]
  - TOXICOLOGIC TEST ABNORMAL [None]
  - VENTRICULAR ARRHYTHMIA [None]
  - VENTRICULAR HYPERTROPHY [None]
